FAERS Safety Report 16388384 (Version 1)
Quarter: 2019Q3

REPORT INFORMATION
  Report Type: Spontaneous
  Country: US (occurrence: US)
  Receive Date: 20190601
  Receipt Date: 20190601
  Transmission Date: 20191004
  Serious: Yes (Other)
  Sender: FDA-Public Use
  Company Number: None

PATIENT
  Age: 39 Year
  Sex: Female
  Weight: 58.95 kg

DRUGS (3)
  1. FLUDRCORTSONE 0.1 MG [Concomitant]
  2. REXULTI [Concomitant]
     Active Substance: BREXPIPRAZOLE
  3. ZIPRASIDONE HYDROCHLORIDE CAPSULES 60MG [Suspect]
     Active Substance: ZIPRASIDONE HYDROCHLORIDE
     Indication: DEPRESSION
     Dosage: ?          QUANTITY:59 CAPSULE(S);?
     Route: 048
     Dates: start: 20190423, end: 20190531

REACTIONS (1)
  - Electrocardiogram QT prolonged [None]

NARRATIVE: CASE EVENT DATE: 20190531
